FAERS Safety Report 7640919-1 (Version None)
Quarter: 2011Q3

REPORT INFORMATION
  Report Type: 
  Country: None (occurrence: None)
  Receive Date: 20110721
  Receipt Date: 20110715
  Transmission Date: 20111222
  Serious: Yes (Death)
  Sender: FDA-Public Use
  Company Number: 2011SP033373

PATIENT
  Age: 63 Year
  Sex: Male

DRUGS (1)
  1. REMERON [Suspect]
     Indication: DEPRESSIVE SYMPTOM
     Dosage: 7.5 MG;QD;PO
     Route: 048

REACTIONS (4)
  - MULTI-ORGAN FAILURE [None]
  - INFECTION [None]
  - LIVER DISORDER [None]
  - LEUKOPENIA [None]
